FAERS Safety Report 16799310 (Version 5)
Quarter: 2022Q1

REPORT INFORMATION
  Report Type: Spontaneous
  Country: US (occurrence: US)
  Receive Date: 20190912
  Receipt Date: 20220315
  Transmission Date: 20220423
  Serious: No
  Sender: FDA-Public Use
  Company Number: US-PFIZER INC-2019394465

PATIENT
  Age: 61 Year
  Sex: Female
  Weight: 63.492 kg

DRUGS (22)
  1. RAPAMUNE [Suspect]
     Active Substance: SIROLIMUS
     Indication: Lung transplant
     Dosage: 4 MG, DAILY
     Route: 048
     Dates: start: 2011
  2. RAPAMUNE [Suspect]
     Active Substance: SIROLIMUS
     Dosage: 3 MG, 1X/DAY
     Route: 048
  3. RAPAMUNE [Suspect]
     Active Substance: SIROLIMUS
     Dosage: 4.5 MG, DAILY (0.5 MG TABLET DAILY AND 2 MG, TWO TABLETS IN THE MORNING)
     Route: 048
  4. RAPAMUNE [Suspect]
     Active Substance: SIROLIMUS
     Dosage: 1 MG, DAILY
     Route: 048
  5. RAPAMUNE [Suspect]
     Active Substance: SIROLIMUS
     Dosage: 2.5 MG, DAILY
     Route: 048
  6. ADVAIR HFA [Concomitant]
     Active Substance: FLUTICASONE PROPIONATE\SALMETEROL XINAFOATE
     Dosage: 2 DF, 2X/DAY
     Dates: start: 201106
  7. ASPIRIN [Concomitant]
     Active Substance: ASPIRIN
     Dosage: 81 MG, 1X/DAY
     Dates: start: 201106
  8. AZITHROMYCIN [Concomitant]
     Active Substance: AZITHROMYCIN
     Dosage: 250 MG, ALTERNATE DAY (TUESDAY, THURSDAY, SATURDAY)
     Dates: start: 201106
  9. CALCIUM\VITAMIN D [Concomitant]
     Active Substance: CALCIUM\VITAMIN D
     Dosage: 500 MG, 2X/DAY
     Dates: start: 201106
  10. CRESTOR [Concomitant]
     Active Substance: ROSUVASTATIN CALCIUM
     Dosage: 10 MG, 1X/DAY
     Dates: start: 201106
  11. FAMCICLOVIR [Concomitant]
     Active Substance: FAMCICLOVIR
     Dosage: 250 MG, 2X/DAY
     Dates: start: 201106
  12. FAMOTIDINE [Concomitant]
     Active Substance: FAMOTIDINE
     Dosage: 20 MG, 2X/DAY
     Dates: start: 201106
  13. FERROUS SULFATE [Concomitant]
     Active Substance: FERROUS SULFATE
     Dosage: 975 MG, 2X/DAY
     Dates: start: 201106
  14. FOSAMAX [Concomitant]
     Active Substance: ALENDRONATE SODIUM
     Dosage: 70 MG/75 ML, WEEKLY (SUNDAY)
     Dates: start: 201106
  15. LOSARTAN [Concomitant]
     Active Substance: LOSARTAN
     Dosage: 25 MG, 1X/DAY
     Dates: start: 201106
  16. MAGNESIUM OXIDE [Concomitant]
     Active Substance: MAGNESIUM OXIDE
     Dosage: 2500 MG, DAILY
     Dates: start: 201106
  17. METOPROLOL TARTRATE [Concomitant]
     Active Substance: METOPROLOL TARTRATE
     Dosage: 0.5 DF, 1X/DAY
     Dates: start: 201106
  18. ONDANSETRON [Concomitant]
     Active Substance: ONDANSETRON
     Dosage: AS NEEDED
     Dates: start: 201106
  19. PREDNISONE [Concomitant]
     Active Substance: PREDNISONE
     Dosage: 5 MG, 1X/DAY
     Dates: start: 201106
  20. PROGRAF [Concomitant]
     Active Substance: TACROLIMUS
     Dosage: 4 MG, DAILY
     Dates: start: 201106
  21. SULFAMETHOXAZOLE/TRIMIPRAMINE [Concomitant]
     Dosage: 1 DF, ALTERNATE DAY
     Route: 048
     Dates: start: 201106
  22. TRAMADOL HYDROCHLORIDE [Concomitant]
     Active Substance: TRAMADOL HYDROCHLORIDE
     Dosage: 50 MG, AS NEEDED
     Dates: start: 201106

REACTIONS (3)
  - Blood test abnormal [Unknown]
  - Off label use [Unknown]
  - Intentional product misuse [Unknown]

NARRATIVE: CASE EVENT DATE: 20190901
